FAERS Safety Report 9685422 (Version 1)
Quarter: 2013Q4

REPORT INFORMATION
  Report Type: Spontaneous
  Country: US (occurrence: US)
  Receive Date: 20131113
  Receipt Date: 20131113
  Transmission Date: 20140711
  Serious: No
  Sender: FDA-Public Use
  Company Number: US-TEVA-433825USA

PATIENT
  Sex: 0

DRUGS (1)
  1. DESMOPRESSIN [Suspect]
     Dosage: 1 IN THE AM AND 1/2 IN THE PM

REACTIONS (2)
  - Thirst [Unknown]
  - Drug effect decreased [Unknown]
